FAERS Safety Report 6134770-1 (Version None)
Quarter: 2009Q1

REPORT INFORMATION
  Report Type: 
  Country: None (occurrence: None)
  Receive Date: 20090327
  Receipt Date: 20090316
  Transmission Date: 20090719
  Serious: Yes (Death, Life-Threatening, Hospitalization)
  Sender: FDA-Public Use
  Company Number: SE-JNJFOC-20090304123

PATIENT
  Age: 61 Year
  Sex: Male

DRUGS (3)
  1. REMICADE [Suspect]
     Indication: RHEUMATOID ARTHRITIS
     Route: 042
  2. OMEPRAZOLE [Concomitant]
  3. METHOTREXATE [Concomitant]

REACTIONS (6)
  - ARTERIOSCLEROSIS CORONARY ARTERY [None]
  - ATRIAL FIBRILLATION [None]
  - CARDIAC ARREST [None]
  - DYSPNOEA EXERTIONAL [None]
  - MYOCARDIAL INFARCTION [None]
  - PULMONARY OEDEMA [None]
